FAERS Safety Report 16058585 (Version 7)
Quarter: 2020Q3

REPORT INFORMATION
  Report Type: Report from Study
  Country: US (occurrence: US)
  Receive Date: 20190311
  Receipt Date: 20200724
  Transmission Date: 20201102
  Serious: Yes (Hospitalization, Disabling)
  Sender: FDA-Public Use
  Company Number: US-PFIZER INC-2019101056

PATIENT
  Age: 17 Year
  Sex: Male
  Weight: 79.5 kg

DRUGS (23)
  1. VINCRISTINE SULFATE. [Suspect]
     Active Substance: VINCRISTINE SULFATE
     Indication: ACUTE LYMPHOCYTIC LEUKAEMIA
     Dosage: 2 MG, UNK
     Route: 042
     Dates: start: 20180810, end: 20181008
  2. VINCRISTINE SULFATE. [Suspect]
     Active Substance: VINCRISTINE SULFATE
     Dosage: 2 MG, UNK
     Route: 042
     Dates: start: 20181116, end: 20190204
  3. CYTARABINE. [Suspect]
     Active Substance: CYTARABINE
     Indication: ACUTE LYMPHOCYTIC LEUKAEMIA
     Dosage: 144.75 ML/HR
     Route: 042
     Dates: start: 20181023, end: 20181025
  4. ONDANSETRON [Concomitant]
     Active Substance: ONDANSETRON
     Dosage: 8 MG, UNK
  5. DEXTROSE. [Concomitant]
     Active Substance: DEXTROSE
     Dosage: UNK
     Dates: start: 20180808
  6. PEGASPARGASE [Suspect]
     Active Substance: PEGASPARGASE
     Dosage: 4672.5 IU, UNK
     Route: 042
     Dates: start: 20181116, end: 20190131
  7. ASPARAGINASE [Suspect]
     Active Substance: ASPARAGINASE
     Dosage: INJECTION
  8. CALCIUM CARBONATE. [Concomitant]
     Active Substance: CALCIUM CARBONATE
  9. PEGASPARGASE [Suspect]
     Active Substance: PEGASPARGASE
     Indication: ACUTE LYMPHOCYTIC LEUKAEMIA
     Dosage: 4672.5 IU, UNK
     Route: 042
     Dates: start: 20180810, end: 20181001
  10. INCB018424 [Suspect]
     Active Substance: RUXOLITINIB
     Indication: ACUTE LYMPHOCYTIC LEUKAEMIA
     Dosage: 95 MG, 2X/DAY TABLET
     Route: 048
     Dates: start: 20181015, end: 20181028
  11. ENOXAPARIN [Concomitant]
     Active Substance: ENOXAPARIN
     Dosage: 100 MG/ML, UNK
     Dates: start: 20180810
  12. CYCLOPHOSPHAMIDE. [Suspect]
     Active Substance: CYCLOPHOSPHAMIDE
     Indication: ACUTE LYMPHOCYTIC LEUKAEMIA
     Dosage: 1930 MG, UNK
     Route: 042
     Dates: start: 20180827, end: 20181015
  13. INCB018424 [Suspect]
     Active Substance: RUXOLITINIB
     Dosage: TABLET
     Route: 048
     Dates: start: 20181116
  14. INCB018424 [Suspect]
     Active Substance: RUXOLITINIB
     Dosage: 75 MG, 2X/DAY TABLET
     Route: 048
     Dates: start: 20190128
  15. LANSOPRAZOLE. [Concomitant]
     Active Substance: LANSOPRAZOLE
     Dosage: 30 MG, UNK
  16. LIDOCAINE AND PRILOCAINE [Concomitant]
     Active Substance: LIDOCAINE\PRILOCAINE
     Dosage: 2.5 %, UNK
  17. POLYETHYLENE GLYCOL [Concomitant]
     Active Substance: POLYETHYLENE GLYCOLS
     Dosage: 3350 DF, UNK
  18. METHOTREXATE SODIUM. [Suspect]
     Active Substance: METHOTREXATE SODIUM
     Indication: ACUTE LYMPHOCYTIC LEUKAEMIA
     Dosage: 15 MG, UNK
     Route: 042
     Dates: start: 20180818, end: 20181008
  19. PROMETHAZINE [Concomitant]
     Active Substance: PROMETHAZINE HYDROCHLORIDE
     Dosage: 25 MG, UNK
  20. SULFAMETHOXAZOLE AND TRIMETHOPRIM [Concomitant]
     Active Substance: SULFAMETHOXAZOLE\TRIMETHOPRIM
     Dosage: [SULFAMETHOXAZOLE 400MG]/ [TRIMETHOPRIM 80 MG]
  21. METHOTREXATE SODIUM. [Suspect]
     Active Substance: METHOTREXATE SODIUM
     Dosage: 15 MG, UNK
     Route: 042
     Dates: start: 20181116, end: 20190128
  22. CYCLOPHOSPHAMIDE. [Suspect]
     Active Substance: CYCLOPHOSPHAMIDE
     Dosage: 1930 MG, UNK
     Route: 042
     Dates: start: 20181116
  23. CHOLECALCIFEROL [Concomitant]
     Active Substance: CHOLECALCIFEROL
     Dosage: 2000 UT

REACTIONS (5)
  - Hypertriglyceridaemia [Recovered/Resolved]
  - Pancreatitis [Recovering/Resolving]
  - Hypertriglyceridaemia [Recovering/Resolving]
  - Hyperlipasaemia [Recovered/Resolved]
  - Hyperkalaemia [Recovered/Resolved]

NARRATIVE: CASE EVENT DATE: 20181029
